FAERS Safety Report 10598233 (Version 1)
Quarter: 2014Q4

REPORT INFORMATION
  Report Type: Spontaneous
  Country: US (occurrence: None)
  Receive Date: 20141120
  Receipt Date: 20141120
  Transmission Date: 20150529
  Serious: Yes (Hospitalization)
  Sender: FDA-Public Use
  Company Number: None

PATIENT
  Age: 56 Year
  Sex: Female

DRUGS (1)
  1. SUTENT [Suspect]
     Active Substance: SUNITINIB MALATE
     Indication: NEOPLASM MALIGNANT
     Route: 048
     Dates: start: 20140916, end: 20141101

REACTIONS (8)
  - Oropharyngeal pain [None]
  - Glossodynia [None]
  - Vomiting [None]
  - Lethargy [None]
  - Glossitis [None]
  - Nausea [None]
  - Fatigue [None]
  - Tongue haemorrhage [None]

NARRATIVE: CASE EVENT DATE: 20141101
